FAERS Safety Report 10261677 (Version 1)
Quarter: 2014Q2

REPORT INFORMATION
  Report Type: Spontaneous
  Country: US (occurrence: US)
  Receive Date: 20140626
  Receipt Date: 20140626
  Transmission Date: 20141212
  Serious: Yes (Other)
  Sender: FDA-Public Use
  Company Number: US-ASTRAZENECA-2014SE45329

PATIENT
  Sex: 0

DRUGS (2)
  1. NEXIUM [Suspect]
     Route: 048
  2. NEXIUM IV [Suspect]
     Dosage: NR NR
     Route: 042

REACTIONS (2)
  - Renal tubular necrosis [Unknown]
  - Tubulointerstitial nephritis [Unknown]
